FAERS Safety Report 10662474 (Version 2)
Quarter: 2015Q1

REPORT INFORMATION
  Report Type: Spontaneous
  Country: IT (occurrence: IT)
  Receive Date: 20141218
  Receipt Date: 20150128
  Transmission Date: 20150720
  Serious: Yes (Hospitalization)
  Sender: FDA-Public Use
  Company Number: IT-EMD SERONO-8002383

PATIENT
  Age: 30 Year
  Sex: Female

DRUGS (2)
  1. REBIF [Suspect]
     Active Substance: INTERFERON BETA-1A
     Indication: MULTIPLE SCLEROSIS
     Route: 058
     Dates: start: 200204, end: 200211
  2. REBIF [Suspect]
     Active Substance: INTERFERON BETA-1A
     Dosage: 132 MCG WEEKLY
     Route: 058
     Dates: start: 20021215, end: 20131216

REACTIONS (6)
  - Haemolytic anaemia [Recovering/Resolving]
  - Palpitations [Recovering/Resolving]
  - Renal failure [Recovering/Resolving]
  - Thrombocytopenia [Recovering/Resolving]
  - Pyrexia [Recovering/Resolving]
  - Haemolytic uraemic syndrome [Recovering/Resolving]

NARRATIVE: CASE EVENT DATE: 20131215
